FAERS Safety Report 7979117-0 (Version None)
Quarter: 2011Q4

REPORT INFORMATION
  Report Type: 
  Country: None (occurrence: None)
  Receive Date: 20111214
  Receipt Date: 20111205
  Transmission Date: 20120403
  Serious: Yes (Hospitalization)
  Sender: FDA-Public Use
  Company Number: US-BAYER-2011-077212

PATIENT
  Age: 19 Year
  Sex: Female
  Weight: 67.12 kg

DRUGS (7)
  1. ERYTHROCIN LACTOBIONATE [Concomitant]
     Dosage: UNK
     Dates: start: 20090501
  2. ZYRTEC [Concomitant]
  3. DIOSMIN [Concomitant]
     Dosage: 25 MG, BID
  4. YAZ [Suspect]
     Indication: ACNE
     Dosage: UNK
     Route: 048
     Dates: start: 20090401, end: 20090601
  5. ZITHROMAX [Concomitant]
  6. DIFFERIN [Concomitant]
     Dosage: 0.1 %, PRN
  7. SYNTHROID [Concomitant]
     Dosage: UNK
     Dates: start: 20040101

REACTIONS (6)
  - PAIN [None]
  - VEIN WALL HYPERTROPHY [None]
  - ANXIETY [None]
  - ANHEDONIA [None]
  - DEEP VEIN THROMBOSIS [None]
  - DEFORMITY [None]
